FAERS Safety Report 7931899-X (Version None)
Quarter: 2011Q4

REPORT INFORMATION
  Report Type: 
  Country: None (occurrence: None)
  Receive Date: 20111121
  Receipt Date: 20111108
  Transmission Date: 20120403
  Serious: Yes (Hospitalization, Other)
  Sender: FDA-Public Use
  Company Number: US-ELI_LILLY_AND_COMPANY-US201005006786

PATIENT
  Sex: Female

DRUGS (13)
  1. SIMVASTATIN [Concomitant]
  2. CLARINEX [Concomitant]
  3. FORTEO [Suspect]
     Dosage: 20 UG, DAILY (1/D)
  4. FORTEO [Suspect]
     Dosage: 20 UG, QD
  5. FORTEO [Suspect]
     Dosage: 20 UG, QD
     Route: 065
  6. METFORMIN HCL [Concomitant]
  7. METOPROLOL TARTRATE [Concomitant]
  8. RAMIPRIL [Concomitant]
  9. FORTEO [Suspect]
     Dosage: 20 UG, DAILY (1/D)
  10. JANTOVEN [Concomitant]
  11. FORTEO [Suspect]
     Indication: OSTEOPOROSIS
     Dosage: 20 UG, DAILY (1/D)
     Dates: start: 20100309
  12. AMLODIPINE [Concomitant]
     Dosage: 2.5 MG, UNK
  13. LEVOTHYROXINE SODIUM [Concomitant]

REACTIONS (8)
  - MUSCLE SPASMS [None]
  - HYPERSENSITIVITY [None]
  - HALLUCINATION [None]
  - OVERDOSE [None]
  - ARTHRITIS [None]
  - MUSCULOSKELETAL DISCOMFORT [None]
  - MUSCULOSKELETAL STIFFNESS [None]
  - ARTHROPATHY [None]
